FAERS Safety Report 18234154 (Version 1)
Quarter: 2020Q3

REPORT INFORMATION
  Report Type: Spontaneous
  Country: HU (occurrence: HU)
  Receive Date: 20200904
  Receipt Date: 20200904
  Transmission Date: 20201103
  Serious: Yes (Other)
  Sender: FDA-Public Use
  Company Number: HU-BAYER-2020-186283

PATIENT
  Age: 47 Year
  Sex: Female

DRUGS (1)
  1. VITRAKVI [Suspect]
     Active Substance: LAROTRECTINIB
     Indication: SARCOMA
     Dosage: 100 MG, BID
     Route: 048
     Dates: start: 20190429, end: 202001

REACTIONS (1)
  - Sarcoma [None]

NARRATIVE: CASE EVENT DATE: 20200130
